FAERS Safety Report 6377497-3 (Version None)
Quarter: 2009Q3

REPORT INFORMATION
  Report Type: 
  Country: None (occurrence: None)
  Receive Date: 20090925
  Receipt Date: 20090911
  Transmission Date: 20100115
  Serious: Yes (Other)
  Sender: FDA-Public Use
  Company Number: US-PFIZER INC-2004115183

PATIENT
  Sex: Female
  Weight: 91 kg

DRUGS (1)
  1. PREMPRO [Suspect]
     Indication: HORMONE REPLACEMENT THERAPY
     Dosage: 0.625/5 MG
     Route: 048
     Dates: start: 19990201, end: 20010201

REACTIONS (1)
  - BREAST CANCER FEMALE [None]
